FAERS Safety Report 4876169-1 (Version None)
Quarter: 2006Q1

REPORT INFORMATION
  Report Type: 
  Country: None (occurrence: None)
  Receive Date: 20060106
  Receipt Date: 20051227
  Transmission Date: 20060701
  Serious: Yes (Hospitalization)
  Sender: FDA-Public Use
  Company Number: RENA-11642

PATIENT
  Age: 64 Year
  Sex: Male
  Weight: 54 kg

DRUGS (24)
  1. RENAGEL [Suspect]
     Indication: HYPERPHOSPHATAEMIA
     Dosage: 0.75 G TID PO
     Route: 048
     Dates: start: 20041112, end: 20050413
  2. RENAGEL [Suspect]
     Indication: HYPERPHOSPHATAEMIA
     Dosage: 0.5 G TID PO
     Route: 048
     Dates: start: 20040914, end: 20041111
  3. CALTAN (CALCIUM CARBONATE) [Concomitant]
  4. MIYA-BM (CLOSTRIDIUM BUTYRICUM) [Concomitant]
  5. LASIX [Concomitant]
  6. CINAL [Concomitant]
  7. MICARDIS [Concomitant]
  8. ASPIRIN [Concomitant]
  9. TANATRIL [Concomitant]
  10. NORVASC [Concomitant]
  11. DEPAS [Concomitant]
  12. PAXIL [Concomitant]
  13. PROCYCLIN [Concomitant]
  14. ARGAMATE (CALCIUM POLYSTYRENE SULFONATE) [Concomitant]
  15. PRINK (ALPROSTADIL) [Concomitant]
  16. EPOGEN [Concomitant]
  17. LOPEMIN [Concomitant]
  18. BUSCOPAN [Concomitant]
  19. LENDORMIN [Concomitant]
  20. AMOBAN [Concomitant]
  21. GASTER [Concomitant]
  22. GASTROM [Concomitant]
  23. CIPROXAN [Concomitant]
  24. ANPLAG [Concomitant]

REACTIONS (1)
  - GASTRIC ULCER [None]
